FAERS Safety Report 5106998-0 (Version None)
Quarter: 2006Q3

REPORT INFORMATION
  Report Type: 
  Country: None (occurrence: None)
  Receive Date: 20060913
  Receipt Date: 20060907
  Transmission Date: 20061208
  Serious: Yes (Death)
  Sender: FDA-Public Use
  Company Number: 028-C5013-06090235

PATIENT
  Age: 53 Year
  Sex: Male
  Weight: 78.9259 kg

DRUGS (7)
  1. REVLIMID [Suspect]
     Indication: MULTIPLE MYELOMA
     Dosage: 25 MG, 1-21, Q 28 DAYS, ORAL
     Route: 048
     Dates: start: 20040329, end: 20060823
  2. DEXAMETHASONE TAB [Suspect]
     Indication: MULTIPLE MYELOMA
     Dates: start: 20040329, end: 20060823
  3. FELODIPINE [Concomitant]
  4. FENOFIBRATE [Concomitant]
  5. EMPRACET (PARACETAMAMOL) [Concomitant]
  6. VENTOLIN [Concomitant]
  7. PULMICORT [Concomitant]

REACTIONS (1)
  - LOSS OF CONSCIOUSNESS [None]
